FAERS Safety Report 9504851 (Version 1)
Quarter: 2013Q3

REPORT INFORMATION
  Report Type: Spontaneous
  Country: US (occurrence: US)
  Receive Date: 20130906
  Receipt Date: 20130906
  Transmission Date: 20140515
  Serious: Yes (Other)
  Sender: FDA-Public Use
  Company Number: ALCN2013US004488

PATIENT
  Sex: 0

DRUGS (2)
  1. DUREZOL [Suspect]
     Dosage: 1 GTT, BID
     Route: 047
     Dates: start: 20130829
  2. THYROID PREPARATIONS [Concomitant]
     Indication: HYPOTHYROIDISM

REACTIONS (5)
  - Ear haemorrhage [Not Recovered/Not Resolved]
  - Localised oedema [Not Recovered/Not Resolved]
  - Swelling face [Not Recovered/Not Resolved]
  - Vision blurred [Not Recovered/Not Resolved]
  - Speech disorder [Not Recovered/Not Resolved]
